FAERS Safety Report 17570030 (Version 1)
Quarter: 2020Q1

REPORT INFORMATION
  Report Type: Spontaneous
  Country: US (occurrence: US)
  Receive Date: 20200323
  Receipt Date: 20200323
  Transmission Date: 20200409
  Serious: No
  Sender: FDA-Public Use
  Company Number: US-JNJFOC-20200230644

PATIENT
  Age: 81 Year
  Sex: Male
  Weight: 79.45 kg

DRUGS (1)
  1. TYLENOL [Suspect]
     Active Substance: ACETAMINOPHEN
     Indication: RENAL PAIN
     Route: 048
     Dates: start: 20200218

REACTIONS (3)
  - Chest discomfort [Recovering/Resolving]
  - Chills [Recovered/Resolved]
  - Inappropriate schedule of product administration [Unknown]

NARRATIVE: CASE EVENT DATE: 20200218
